FAERS Safety Report 4709087-X (Version None)
Quarter: 2005Q3

REPORT INFORMATION
  Report Type: 
  Country: None (occurrence: None)
  Receive Date: 20050705
  Receipt Date: 20050623
  Transmission Date: 20060218
  Serious: Yes (Hospitalization, Other)
  Sender: FDA-Public Use
  Company Number: 2005074380

PATIENT
  Age: 69 Year
  Sex: Male
  Weight: 113.3993 kg

DRUGS (10)
  1. NORVASC [Suspect]
     Indication: HYPERTENSION
     Dosage: 5 MG (5 MG, 1 IN 1 D), ORAL
     Route: 048
     Dates: start: 20020201, end: 20050511
  2. ASPIRIN [Suspect]
     Indication: ILL-DEFINED DISORDER
  3. ATENOLOL [Concomitant]
  4. ZESTRIL [Concomitant]
  5. DURAGESIC-100 [Concomitant]
  6. FOLIC ACID [Concomitant]
  7. VITAMIN B12 (VITAMIN B12) [Concomitant]
  8. MULTIPLE VITAMINE FOR SENIROS 9ASCORBIC ACID, ERGOCALCIFEROL, FOLIC AC [Concomitant]
  9. ULTRAM [Concomitant]
  10. TYLENOL (PARACETAMOL) [Concomitant]

REACTIONS (9)
  - ANAEMIA VITAMIN B12 DEFICIENCY [None]
  - CHEST PAIN [None]
  - CONSTIPATION [None]
  - DRUG TOLERANCE DECREASED [None]
  - HAEMATOCHEZIA [None]
  - HAEMORRHAGE [None]
  - INTERVERTEBRAL DISC PROTRUSION [None]
  - IRON DEFICIENCY ANAEMIA [None]
  - SPINAL COLUMN STENOSIS [None]
